FAERS Safety Report 17062729 (Version 1)
Quarter: 2019Q4

REPORT INFORMATION
  Report Type: Spontaneous
  Country: DE (occurrence: DE)
  Receive Date: 20191122
  Receipt Date: 20191122
  Transmission Date: 20200122
  Serious: Yes (Other)
  Sender: FDA-Public Use
  Company Number: DE-BRISTOL-MYERS SQUIBB COMPANY-BMS-2019-109111

PATIENT
  Age: 58 Year
  Sex: Female
  Weight: 79 kg

DRUGS (7)
  1. IPILIMUMAB [Suspect]
     Active Substance: IPILIMUMAB
     Indication: DIFFUSE LARGE B-CELL LYMPHOMA
     Dosage: IPILIMUMAB TOGETHER WITH NIVOLUMAB
     Route: 065
     Dates: start: 201906, end: 201907
  2. MABTHERA [Suspect]
     Active Substance: RITUXIMAB
     Indication: DIFFUSE LARGE B-CELL LYMPHOMA
     Dosage: 1ST LINE THERAPY, ACCORDING TO R-CHOP REGIMEN, 6 CYCLES
     Route: 065
     Dates: start: 201708, end: 201712
  3. OBINUTUZUMAB. [Suspect]
     Active Substance: OBINUTUZUMAB
     Indication: DIFFUSE LARGE B-CELL LYMPHOMA
     Dosage: 3RD LINE THERAPY, TOGETHER WITH X-RAY THERAPY
     Route: 065
     Dates: start: 201811, end: 201901
  4. NIVOLUMAB [Suspect]
     Active Substance: NIVOLUMAB
     Indication: DIFFUSE LARGE B-CELL LYMPHOMA
     Dosage: IPILIMUMAB TOGETHER WITH NIVOLUMAB
     Route: 065
     Dates: start: 201906, end: 201907
  5. DHAP [Suspect]
     Active Substance: CISPLATIN\CYTARABINE\DEXAMETHASONE
     Indication: DIFFUSE LARGE B-CELL LYMPHOMA
     Dosage: 2ND LINE THERAPY, ACCORDING TO DHAP REGIMEN, 1 CYCLE
     Route: 065
     Dates: start: 201808
  6. CHOP [Suspect]
     Active Substance: CYCLOPHOSPHAMIDE\DOXORUBICIN\PREDNISONE\VINCRISTINE
     Indication: DIFFUSE LARGE B-CELL LYMPHOMA
     Dosage: 1ST LINE THERAPY, ACCORDING TO R-CHOP REGIMEN, 6 CYCLES
     Route: 065
     Dates: start: 201708, end: 201712
  7. MABTHERA [Suspect]
     Active Substance: RITUXIMAB
     Indication: PRODUCT USED FOR UNKNOWN INDICATION
     Dosage: 2 ADMINISTRATIONS AS MONOTHERAPY
     Route: 065
     Dates: start: 201708, end: 201712

REACTIONS (2)
  - Renal failure [Unknown]
  - Intentional product use issue [Unknown]
